FAERS Safety Report 11166121 (Version 1)
Quarter: 2015Q2

REPORT INFORMATION
  Report Type: Spontaneous
  Country: JP (occurrence: JP)
  Receive Date: 20150605
  Receipt Date: 20150605
  Transmission Date: 20150821
  Serious: Yes (Hospitalization)
  Sender: FDA-Public Use
  Company Number: PHJP2014JP001428

PATIENT
  Age: 23 Year
  Sex: Male

DRUGS (1)
  1. TEGRETOL [Suspect]
     Active Substance: CARBAMAZEPINE
     Indication: PRODUCT USED FOR UNKNOWN INDICATION
     Dosage: UNK
     Route: 048

REACTIONS (8)
  - Pyrexia [Unknown]
  - Skin erosion [Recovering/Resolving]
  - Mucosal erosion [Recovering/Resolving]
  - Scab [Recovering/Resolving]
  - Generalised erythema [Recovering/Resolving]
  - Hypogammaglobulinaemia [Recovered/Resolved]
  - Erythema multiforme [Recovering/Resolving]
  - Staphylococcal impetigo [Recovering/Resolving]

NARRATIVE: CASE EVENT DATE: 20140108
